FAERS Safety Report 8954500 (Version 1)
Quarter: 2012Q4

REPORT INFORMATION
  Report Type: 
  Country: AU (occurrence: AU)
  Receive Date: 20121210
  Receipt Date: 20121210
  Transmission Date: 20130627
  Serious: Yes (Other)
  Sender: FDA-Public Use
  Company Number: PHHY2012AU112795

PATIENT
  Sex: Female

DRUGS (5)
  1. ACLASTA [Suspect]
     Dosage: UNK UKN, UNK
     Route: 042
  2. ACLASTA [Suspect]
     Dosage: UNK UKN, UNK
     Route: 042
  3. ACLASTA [Suspect]
     Dosage: 5 mg, UNK
     Route: 042
     Dates: start: 20101119
  4. ACLASTA [Suspect]
     Dosage: 5 mg, UNK
     Route: 042
     Dates: start: 20111129
  5. ACLASTA [Suspect]
     Dosage: 5 mg, UNK
     Route: 042
     Dates: start: 20121204

REACTIONS (2)
  - Urinary tract infection [Not Recovered/Not Resolved]
  - Body temperature increased [Not Recovered/Not Resolved]
